FAERS Safety Report 11328294 (Version 1)
Quarter: 2015Q3

REPORT INFORMATION
  Report Type: Spontaneous
  Country: US (occurrence: US)
  Receive Date: 20150731
  Receipt Date: 20150731
  Transmission Date: 20151125
  Serious: No
  Sender: FDA-Public Use
  Company Number: US-TAKEDA-2014TUS010528

PATIENT
  Sex: Male

DRUGS (1)
  1. COLCRYS [Suspect]
     Active Substance: COLCHICINE
     Indication: GOUT
     Dosage: 0.6 MG, 2 TABLETS THE FIRST HOUR AND THE ONE TABLET EVERY HOUR UNTIL
     Route: 065
     Dates: start: 20141022

REACTIONS (1)
  - Intentional overdose [Not Recovered/Not Resolved]
